FAERS Safety Report 5321982-X (Version None)
Quarter: 2007Q2

REPORT INFORMATION
  Report Type: 
  Country: None (occurrence: None)
  Receive Date: 20070511
  Receipt Date: 20070502
  Transmission Date: 20071010
  Serious: Yes (Other)
  Sender: FDA-Public Use
  Company Number: PHEH2007US06009

PATIENT
  Age: 43 Year
  Sex: Female

DRUGS (3)
  1. ZELNORM [Suspect]
     Indication: CONSTIPATION
     Dosage: 6 MG, BID
     Route: 048
     Dates: start: 20050101, end: 20070423
  2. MULTI-VITAMIN [Concomitant]
     Dosage: UNK, QD
     Route: 048
  3. OMEGA 3 [Concomitant]
     Dosage: UNK, QD
     Route: 048

REACTIONS (13)
  - ABDOMINAL PAIN [None]
  - ANXIETY [None]
  - CHEST PAIN [None]
  - DIARRHOEA [None]
  - DYSPNOEA [None]
  - FEELING ABNORMAL [None]
  - FEELING COLD [None]
  - HAEMATOCHEZIA [None]
  - HEART RATE INCREASED [None]
  - HYPOAESTHESIA [None]
  - MUSCLE SPASMS [None]
  - NERVOUS SYSTEM DISORDER [None]
  - RECTAL HAEMORRHAGE [None]
